FAERS Safety Report 13541188 (Version 1)
Quarter: 2017Q2

REPORT INFORMATION
  Report Type: Spontaneous
  Country: GB (occurrence: GB)
  Receive Date: 20170512
  Receipt Date: 20170512
  Transmission Date: 20170830
  Serious: Yes (Hospitalization, Other)
  Sender: FDA-Public Use
  Company Number: GB-SA-2017SA081778

PATIENT
  Age: 48 Year
  Sex: Female

DRUGS (5)
  1. ALEMTUZUMAB [Suspect]
     Active Substance: ALEMTUZUMAB
     Route: 065
     Dates: start: 20160418
  2. RAMIPRIL. [Concomitant]
     Active Substance: RAMIPRIL
     Indication: HYPERTENSION
     Dates: start: 2015
  3. ALEMTUZUMAB [Suspect]
     Active Substance: ALEMTUZUMAB
     Route: 065
     Dates: start: 20170411
  4. FERROUS FUMARATE [Concomitant]
     Active Substance: FERROUS FUMARATE
  5. MEFENAMIC ACID. [Concomitant]
     Active Substance: MEFENAMIC ACID
     Indication: MENORRHAGIA

REACTIONS (4)
  - Hypothyroidism [Unknown]
  - Immune thrombocytopenic purpura [Unknown]
  - Appendicitis [Unknown]
  - Fatigue [Not Recovered/Not Resolved]

NARRATIVE: CASE EVENT DATE: 201607
